FAERS Safety Report 23914599 (Version 1)
Quarter: 2024Q2

REPORT INFORMATION
  Report Type: Spontaneous
  Country: IN (occurrence: IN)
  Receive Date: 20240529
  Receipt Date: 20240529
  Transmission Date: 20240716
  Serious: Yes (Other)
  Sender: FDA-Public Use
  Company Number: IN-SUN PHARMACEUTICAL INDUSTRIES LTD-2024R1-447835

PATIENT
  Age: 50 Year
  Sex: Male

DRUGS (6)
  1. CEFTRIAXONE [Suspect]
     Active Substance: CEFTRIAXONE\CEFTRIAXONE SODIUM
     Indication: Craniofacial injury
     Dosage: 1 GRAM, BID
     Route: 042
  2. ACECLOFENAC [Suspect]
     Active Substance: ACECLOFENAC
     Indication: Craniofacial injury
     Dosage: UNK
     Route: 065
  3. ACETAMINOPHEN [Suspect]
     Active Substance: ACETAMINOPHEN
     Indication: Craniofacial injury
     Dosage: 325 MILLIGRAM, BID
     Route: 065
  4. CETIRIZINE [Concomitant]
     Active Substance: CETIRIZINE HYDROCHLORIDE
     Indication: Craniofacial injury
     Dosage: 10 MILLIGRAM, BID
     Route: 065
  5. CHLORHEXIDINE [Concomitant]
     Active Substance: CHLORHEXIDINE\CHLORHEXIDINE GLUCONATE
     Indication: Craniofacial injury
     Dosage: UNK
     Route: 065
  6. METRONIDAZOLE [Concomitant]
     Active Substance: METRONIDAZOLE
     Indication: Craniofacial injury
     Dosage: 500 MILLIGRAM, TID
     Route: 065

REACTIONS (1)
  - Stevens-Johnson syndrome [Unknown]
